FAERS Safety Report 16114568 (Version 1)
Quarter: 2019Q1

REPORT INFORMATION
  Report Type: Spontaneous
  Country: FR (occurrence: FR)
  Receive Date: 20190325
  Receipt Date: 20190325
  Transmission Date: 20190418
  Serious: Yes (Death, Congenital Anomaly)
  Sender: FDA-Public Use
  Company Number: FR-PFIZER INC-2019123985

PATIENT
  Sex: Female
  Weight: .76 kg

DRUGS (1)
  1. MISOPROSTOL. [Suspect]
     Active Substance: MISOPROSTOL
     Indication: ABORTION SPONTANEOUS
     Dosage: 4 DF, UNK
     Route: 064
     Dates: start: 201805, end: 201805

REACTIONS (8)
  - Spleen malformation [Fatal]
  - Dysmorphism [Fatal]
  - Congenital hand malformation [Fatal]
  - Pulmonary hypoplasia [Fatal]
  - Maternal exposure during pregnancy [Fatal]
  - Diaphragmatic hernia [Fatal]
  - Talipes [Fatal]
  - Heart disease congenital [Fatal]

NARRATIVE: CASE EVENT DATE: 2018
